FAERS Safety Report 10300573 (Version 2)
Quarter: 2018Q1

REPORT INFORMATION
  Report Type: Report from Study
  Country: US (occurrence: US)
  Receive Date: 20140714
  Receipt Date: 20180312
  Transmission Date: 20180508
  Serious: Yes (Other)
  Sender: FDA-Public Use
  Company Number: US-ROCHE-1432579

PATIENT
  Age: 6 Year
  Sex: Male
  Weight: 25 kg

DRUGS (5)
  1. SYNTHROID [Concomitant]
     Active Substance: LEVOTHYROXINE SODIUM
  2. RITUXIMAB. [Suspect]
     Active Substance: RITUXIMAB
     Indication: NEUROBLASTOMA
     Route: 065
  3. OMEGA 3 [Concomitant]
     Active Substance: OMEGA-3 FATTY ACIDS
  4. NUTROPIN AQ [Suspect]
     Active Substance: SOMATROPIN
     Dosage: 7 INJECTION/WEEK
     Route: 058
  5. NUTROPIN AQ [Suspect]
     Active Substance: SOMATROPIN
     Indication: GROWTH HORMONE DEFICIENCY
     Dosage: 7 INJECTION/WEEK
     Route: 058

REACTIONS (6)
  - Growth hormone deficiency [Unknown]
  - Cataract [Unknown]
  - Speech disorder [Unknown]
  - Deafness [Unknown]
  - Upper respiratory tract infection [Unknown]
  - Dyscalculia [Unknown]

NARRATIVE: CASE EVENT DATE: 201402
